FAERS Safety Report 9189856 (Version 2)
Quarter: 2013Q2

REPORT INFORMATION
  Report Type: Spontaneous
  Country: US (occurrence: None)
  Receive Date: 20120703
  Receipt Date: 20121031
  Transmission Date: 20140414
  Serious: Yes (Other)
  Sender: FDA-Public Use
  Company Number: PHEH2012US009466

PATIENT
  Age: 21 Year
  Sex: Female

DRUGS (3)
  1. GILENYA (FTY) CAPSULE, 0.5MG [Suspect]
     Indication: MULTIPLE SCLEROSIS
     Route: 048
     Dates: start: 20120227
  2. FIORICET (BUTALBITAL, CAFFEINE, PARACETAMOL) TABLET [Concomitant]
  3. CITALOPRAM (CITALOPRAM) [Suspect]

REACTIONS (6)
  - Headache [None]
  - Kidney infection [None]
  - Bronchitis [None]
  - Muscle spasms [None]
  - Multiple sclerosis relapse [None]
  - Drug interaction [None]
